FAERS Safety Report 18993363 (Version 1)
Quarter: 2021Q1

REPORT INFORMATION
  Report Type: Other
  Country: PL (occurrence: PL)
  Receive Date: 20210310
  Receipt Date: 20210310
  Transmission Date: 20210420
  Serious: Yes (Life-Threatening)
  Sender: FDA-Public Use
  Company Number: PL-GE HEALTHCARE LIFE SCIENCES-2021CSU001212

PATIENT

DRUGS (2)
  1. OMNIPAQUE [Suspect]
     Active Substance: IOHEXOL
     Indication: COMPUTERISED TOMOGRAM HEAD
     Dosage: 40 ML, SINGLE
     Route: 042
     Dates: start: 20171103, end: 20171103
  2. OMNIPAQUE [Suspect]
     Active Substance: IOHEXOL
     Indication: PRODUCT USED FOR UNKNOWN INDICATION

REACTIONS (7)
  - Nausea [Unknown]
  - Chest discomfort [Unknown]
  - Tongue oedema [Unknown]
  - Lip oedema [Unknown]
  - Pallor [Unknown]
  - Vomiting [Unknown]
  - Hypotonia [Unknown]

NARRATIVE: CASE EVENT DATE: 20171103
